FAERS Safety Report 7543044-3 (Version None)
Quarter: 2011Q2

REPORT INFORMATION
  Report Type: 
  Country: None (occurrence: None)
  Receive Date: 20110613
  Receipt Date: 20110608
  Transmission Date: 20111010
  Serious: Yes (Other)
  Sender: FDA-Public Use
  Company Number: US-PFIZER INC-2011126076

PATIENT

DRUGS (1)
  1. CHANTIX [Suspect]
     Dosage: UNK

REACTIONS (5)
  - DERMATITIS ALLERGIC [None]
  - SWELLING FACE [None]
  - SKIN EXFOLIATION [None]
  - BLISTER [None]
  - RASH GENERALISED [None]
